FAERS Safety Report 7878391-9 (Version None)
Quarter: 2011Q4

REPORT INFORMATION
  Report Type: 
  Country: None (occurrence: None)
  Receive Date: 20111028
  Receipt Date: 20111021
  Transmission Date: 20120403
  Serious: Yes (Hospitalization)
  Sender: FDA-Public Use
  Company Number: 2010SP003552

PATIENT
  Age: 55 Year
  Sex: Male
  Weight: 115.8 kg

DRUGS (21)
  1. FEXOFENADINE [Concomitant]
  2. FLONASE [Concomitant]
  3. LISINOPRIL [Concomitant]
  4. CALCIFEROL [Concomitant]
  5. SERTRALINE HYDROCHLORIDE [Concomitant]
  6. HYDROCHLOROTHIAZIDE [Concomitant]
  7. ADVAIR DISKUS 100/50 [Concomitant]
  8. MONTELUKAST SODIUM [Concomitant]
  9. VERAPAMIL [Concomitant]
  10. MECLIZINE [Concomitant]
  11. GLUCOSAMINE [Concomitant]
  12. VITAMIN TAB [Concomitant]
  13. IPRATROPIUM BROMIDE [Concomitant]
  14. COMBIVENT [Concomitant]
  15. ARFORMOTEROL TARTRATE [Suspect]
     Indication: CHRONIC OBSTRUCTIVE PULMONARY DISEASE
     Dosage: BID;INHALATION ; BID;INHALATION
     Route: 055
     Dates: start: 20101101, end: 20101211
  16. ARFORMOTEROL TARTRATE [Suspect]
     Indication: CHRONIC OBSTRUCTIVE PULMONARY DISEASE
     Dosage: BID;INHALATION ; BID;INHALATION
     Route: 055
     Dates: start: 20101216
  17. SPIRIVA [Concomitant]
  18. FLOVENT [Concomitant]
  19. PNEUMOVAX 23 [Concomitant]
  20. MELOXICAM [Concomitant]
  21. ALBUTEROL [Concomitant]

REACTIONS (6)
  - ATRIAL TACHYCARDIA [None]
  - HYPERTENSION [None]
  - PAIN IN EXTREMITY [None]
  - ACUTE CORONARY SYNDROME [None]
  - HYPOAESTHESIA [None]
  - HYPERLIPIDAEMIA [None]
